FAERS Safety Report 24268712 (Version 1)
Quarter: 2024Q3

REPORT INFORMATION
  Report Type: Report from Study
  Country: JP (occurrence: JP)
  Receive Date: 20240830
  Receipt Date: 20240830
  Transmission Date: 20241016
  Serious: Yes (Death)
  Sender: AKEBIA THERAPEUTICS
  Company Number: JP-MTPC-MTPC2024-0017898

PATIENT
  Age: 68 Year
  Sex: Male
  Weight: 59.3 kg

DRUGS (14)
  1. VADADUSTAT [Suspect]
     Active Substance: VADADUSTAT
     Indication: Nephrogenic anaemia
     Dosage: 600 MILLIGRAM, QD
     Route: 048
     Dates: start: 20211021, end: 20221110
  2. BENFOTIAMINE\CYANOCOBALAMIN\PYRIDOXINE HYDROCHLORIDE [Concomitant]
     Active Substance: BENFOTIAMINE\CYANOCOBALAMIN\PYRIDOXINE HYDROCHLORIDE
     Indication: Prophylaxis
     Dosage: 1 DOSAGE FORM, QD
     Route: 048
     Dates: start: 20211222, end: 20220420
  3. ENTRESTO [Concomitant]
     Active Substance: SACUBITRIL\VALSARTAN
     Indication: Product used for unknown indication
     Dosage: 200 MILLIGRAM, QD
     Route: 048
     Dates: start: 20220120, end: 20221110
  4. METHOXY POLYETHYLENE GLYCOL-EPOETIN BETA [Concomitant]
     Active Substance: METHOXY POLYETHYLENE GLYCOL-EPOETIN BETA
     Indication: Nephrogenic anaemia
     Dosage: 150 MICROGRAM, MONTHLY
     Route: 058
     Dates: end: 20210915
  5. FUROSEMIDE [Concomitant]
     Active Substance: FUROSEMIDE
     Indication: Nephrogenic anaemia
     Dosage: 80 MILLIGRAM, QD
     Route: 048
     Dates: end: 20220817
  6. FUROSEMIDE [Concomitant]
     Active Substance: FUROSEMIDE
     Dosage: 120 MILLIGRAM, QD
     Route: 048
     Dates: start: 20220818, end: 20221110
  7. SPIRONOLACTONE [Concomitant]
     Active Substance: SPIRONOLACTONE
     Indication: Product used for unknown indication
     Dosage: 25 MILLIGRAM, QD
     Route: 048
     Dates: end: 20221110
  8. CALBLOCK [AZELNIDIPINE] [Concomitant]
     Indication: Product used for unknown indication
     Dosage: 16 MILLIGRAM, QD
     Route: 048
     Dates: end: 20221110
  9. MICARDIS [Concomitant]
     Active Substance: TELMISARTAN
     Indication: Product used for unknown indication
     Dosage: 80 MILLIGRAM, QD
     Route: 048
     Dates: end: 20220119
  10. CALTAN [Concomitant]
     Active Substance: CALCIUM CARBONATE
     Indication: Product used for unknown indication
     Dosage: 3000 MILLIGRAM, QD
     Route: 048
     Dates: end: 20221110
  11. FOSRENOL [Concomitant]
     Active Substance: LANTHANUM CARBONATE
     Indication: Product used for unknown indication
     Dosage: 2250 MILLIGRAM, QD
     Route: 048
     Dates: end: 20221110
  12. EVOCALCET [Concomitant]
     Active Substance: EVOCALCET
     Indication: Product used for unknown indication
     Dosage: 1 MILLIGRAM, QD
     Route: 048
     Dates: end: 20221110
  13. ESOMEPRAZOLE MAGNESIUM [Concomitant]
     Active Substance: ESOMEPRAZOLE MAGNESIUM
     Indication: Illness
     Dosage: 20 MILLIGRAM, QD
     Route: 048
  14. SILODOSIN [Concomitant]
     Active Substance: SILODOSIN
     Indication: Illness
     Dosage: 8 MILLIGRAM, QD
     Route: 048
     Dates: end: 20210915

REACTIONS (1)
  - Cholecystitis [Fatal]

NARRATIVE: CASE EVENT DATE: 20221222
